FAERS Safety Report 12565427 (Version 1)
Quarter: 2016Q3

REPORT INFORMATION
  Report Type: Report from Study
  Country: IT (occurrence: IT)
  Receive Date: 20160718
  Receipt Date: 20160718
  Transmission Date: 20161109
  Serious: Yes (Other)
  Sender: FDA-Public Use
  Company Number: IT-ACTAVIS-2015-29567

PATIENT
  Age: 45 Year
  Sex: Female

DRUGS (11)
  1. IRINOTECAN (UNKNOWN) [Suspect]
     Active Substance: IRINOTECAN
     Indication: COLORECTAL CANCER
     Dosage: 300 MG, CYCLICAL
     Route: 065
     Dates: start: 20150420
  2. FLUOROURACIL. [Suspect]
     Active Substance: FLUOROURACIL
     Dosage: 3100 MG, CYCLICAL
     Route: 041
     Dates: start: 20151007
  3. LEUCOVORIN                         /00566701/ [Suspect]
     Active Substance: LEUCOVORIN
     Dosage: 260 MG, CYCLICAL
     Route: 065
     Dates: start: 20151007
  4. FLUOROURACIL. [Suspect]
     Active Substance: FLUOROURACIL
     Indication: COLORECTAL CANCER
     Dosage: 660 MG, CYCLICAL
     Route: 040
     Dates: start: 20150420
  5. GRANULOCYTE COLONY STIMULATING FACTOR [Concomitant]
     Active Substance: GRANULOCYTE COLONY-STIMULATING FACTOR NOS
     Indication: PRODUCT USED FOR UNKNOWN INDICATION
     Dosage: UNK
     Route: 065
     Dates: start: 20150625, end: 20150625
  6. LEUCOVORIN                         /00566701/ [Suspect]
     Active Substance: LEUCOVORIN
     Indication: COLORECTAL CANCER
     Dosage: 330 MG, CYCLICAL
     Route: 065
     Dates: start: 20150420
  7. FLUOROURACIL. [Suspect]
     Active Substance: FLUOROURACIL
     Dosage: 3900 MG, CYCLICAL
     Route: 041
     Dates: start: 20150420
  8. ZALTRAP [Suspect]
     Active Substance: ZIV-AFLIBERCEPT
     Indication: COLORECTAL CANCER
     Dosage: UNK, CYCLICAL
     Route: 042
     Dates: start: 20150420
  9. ZALTRAP [Suspect]
     Active Substance: ZIV-AFLIBERCEPT
     Dosage: 240 MG, CYCLICAL
     Route: 042
     Dates: start: 20151007
  10. IRINOTECAN (UNKNOWN) [Suspect]
     Active Substance: IRINOTECAN
     Dosage: 240 MG, CYCLICAL
     Route: 065
     Dates: start: 20151007
  11. FLUOROURACIL. [Suspect]
     Active Substance: FLUOROURACIL
     Dosage: 530 MG, CYCLICAL
     Route: 040
     Dates: start: 20151007

REACTIONS (5)
  - Cough [Recovered/Resolved]
  - Rhinitis [Recovered/Resolved]
  - Tracheitis [Recovered/Resolved]
  - Stomatitis [Recovered/Resolved]
  - Nasal inflammation [Recovered/Resolved]

NARRATIVE: CASE EVENT DATE: 20151007
